FAERS Safety Report 23993579 (Version 1)
Quarter: 2024Q2

REPORT INFORMATION
  Report Type: Spontaneous
  Country: US (occurrence: US)
  Receive Date: 20240620
  Receipt Date: 20240620
  Transmission Date: 20240716
  Serious: Yes (Other)
  Sender: FDA-Public Use
  Company Number: US-MLMSERVICE-20240415-PI021840-00174-2

PATIENT
  Age: 29 Year
  Sex: Female

DRUGS (4)
  1. HALOPERIDOL [Suspect]
     Active Substance: HALOPERIDOL
     Indication: Mania
     Dosage: 5 MILLIGRAM, TWO TIMES A DAY
     Route: 065
  2. HALOPERIDOL [Suspect]
     Active Substance: HALOPERIDOL
     Indication: Schizoaffective disorder bipolar type
  3. CLOZAPINE [Suspect]
     Active Substance: CLOZAPINE
     Indication: Mania
     Dosage: 450 MILLIGRAM, ONCE A DAY
     Route: 065
     Dates: start: 20230502
  4. CLOZAPINE [Suspect]
     Active Substance: CLOZAPINE
     Indication: Schizoaffective disorder bipolar type
     Dosage: 425 MILLIGRAM, ONCE A DAY
     Route: 065
     Dates: start: 20230711

REACTIONS (6)
  - Sedation complication [Unknown]
  - Antipsychotic drug level above therapeutic [Recovered/Resolved]
  - Joint lock [Recovered/Resolved]
  - Fall [Recovered/Resolved]
  - Myoclonus [Recovered/Resolved]
  - Gait disturbance [Recovered/Resolved]

NARRATIVE: CASE EVENT DATE: 20230502
